FAERS Safety Report 25085560 (Version 2)
Quarter: 2025Q2

REPORT INFORMATION
  Report Type: Spontaneous
  Country: JP (occurrence: JP)
  Receive Date: 20250317
  Receipt Date: 20250430
  Transmission Date: 20250716
  Serious: No
  Sender: AMGEN
  Company Number: JP-KYOWAKIRIN-2025KK004507

PATIENT
  Age: 86 Year

DRUGS (1)
  1. DARBEPOETIN ALFA [Suspect]
     Active Substance: DARBEPOETIN ALFA
     Indication: Product used for unknown indication
     Route: 065

REACTIONS (1)
  - No adverse event [Unknown]
